FAERS Safety Report 6126988-9 (Version None)
Quarter: 2009Q1

REPORT INFORMATION
  Report Type: 
  Country: None (occurrence: None)
  Receive Date: 20090320
  Receipt Date: 20090311
  Transmission Date: 20090719
  Serious: Yes (Hospitalization)
  Sender: FDA-Public Use
  Company Number: DE-MERCK-0903USA02706

PATIENT
  Age: 47 Year
  Sex: Female

DRUGS (1)
  1. HYDRODIURIL [Suspect]
     Indication: HYPERTENSION
     Route: 048

REACTIONS (5)
  - CENTRAL PONTINE MYELINOLYSIS [None]
  - DEHYDRATION [None]
  - HYPONATRAEMIA [None]
  - LYMPH NODE TUBERCULOSIS [None]
  - MALNUTRITION [None]
